FAERS Safety Report 9745660 (Version 1)
Quarter: 2013Q4

REPORT INFORMATION
  Report Type: Spontaneous
  Country: US (occurrence: US)
  Receive Date: 20131211
  Receipt Date: 20131211
  Transmission Date: 20140711
  Serious: Yes (Death)
  Sender: FDA-Public Use
  Company Number: US-ROXANE LABORATORIES, INC.-2013-RO-01938RO

PATIENT
  Sex: Male

DRUGS (1)
  1. MORPHINE [Suspect]
     Route: 048

REACTIONS (2)
  - Death [Fatal]
  - Product quality issue [Unknown]
